FAERS Safety Report 15516196 (Version 1)
Quarter: 2018Q4

REPORT INFORMATION
  Report Type: Spontaneous
  Country: US (occurrence: US)
  Receive Date: 20181017
  Receipt Date: 20181017
  Transmission Date: 20190205
  Serious: No
  Sender: FDA-Public Use
  Company Number: US-PFIZER INC-2018419297

PATIENT
  Age: 36 Year
  Sex: Female

DRUGS (2)
  1. LYRICA [Suspect]
     Active Substance: PREGABALIN
     Indication: FIBROMYALGIA
     Dosage: 200 MG, UNK, (4 TO 5 TIMES A DAY (800-1000MG A DAY)
  2. LYRICA [Suspect]
     Active Substance: PREGABALIN
     Dosage: UNK, (GAVE (LYRICA), EVERY 4 HOURS)

REACTIONS (4)
  - Withdrawal syndrome [Unknown]
  - Headache [Unknown]
  - Overdose [Unknown]
  - Product use issue [Unknown]
